FAERS Safety Report 23797968 (Version 1)
Quarter: 2024Q2

REPORT INFORMATION
  Report Type: Report from Study
  Country: US (occurrence: US)
  Receive Date: 20240430
  Receipt Date: 20240430
  Transmission Date: 20240715
  Serious: Yes (Hospitalization, Other)
  Sender: FDA-Public Use
  Company Number: US-AUROBINDO-AUR-APL-2024-019132

PATIENT
  Age: 37 Year
  Sex: Female

DRUGS (2)
  1. LETROZOLE [Suspect]
     Active Substance: LETROZOLE
     Indication: Ovarian granulosa cell tumour
     Dosage: 2.5 MILLIGRAM, DAILY (CONTINUED FOR ALL 28-DAYS OF THE 28-DAY CYCLE. AFTER 16 CYCLES, SHE HAD DISEAS
     Route: 048
  2. PALBOCICLIB [Suspect]
     Active Substance: PALBOCICLIB
     Indication: Ovarian granulosa cell tumour
     Dosage: UNK, CYCLICAL (25MG FOR DAYS 1-21 FOR EACH 28-DAY CYCLE)
     Route: 048

REACTIONS (1)
  - Drug ineffective [Unknown]
